FAERS Safety Report 24910955 (Version 1)
Quarter: 2025Q1

REPORT INFORMATION
  Report Type: Spontaneous
  Country: US (occurrence: None)
  Receive Date: 20250130
  Receipt Date: 20250130
  Transmission Date: 20250409
  Serious: No
  Sender: FDA-CTU
  Company Number: None

PATIENT
  Age: 69 Year
  Sex: Female
  Weight: 66.6 kg

DRUGS (8)
  1. WEGOVY [Suspect]
     Active Substance: SEMAGLUTIDE
     Indication: Obesity
     Route: 058
     Dates: start: 20241207, end: 20250111
  2. CRESTOR [Concomitant]
     Active Substance: ROSUVASTATIN CALCIUM
  3. AMLODIPINE [Concomitant]
     Active Substance: AMLODIPINE BESYLATE
  4. zedia [Concomitant]
  5. FENOFIBRATE [Concomitant]
     Active Substance: FENOFIBRATE
     Dates: start: 20241207, end: 20250111
  6. VitaminD [Concomitant]
  7. COENZYME Q10 [Concomitant]
     Active Substance: DIETARY SUPPLEMENT\UBIDECARENONE
  8. PROBIOTICS NOS [Concomitant]
     Active Substance: PROBIOTICS NOS

REACTIONS (5)
  - Therapy change [None]
  - Pain of skin [None]
  - Paraesthesia [None]
  - Cholelithiasis [None]
  - Drug ineffective [None]

NARRATIVE: CASE EVENT DATE: 20250107
